FAERS Safety Report 4407748-3 (Version None)
Quarter: 2004Q3

REPORT INFORMATION
  Report Type: 
  Country: None (occurrence: None)
  Receive Date: 20040721
  Receipt Date: 20040625
  Transmission Date: 20050211
  Serious: Yes (Other)
  Sender: FDA-Public Use
  Company Number: USA040671193

PATIENT
  Age: 14 Year
  Sex: Male
  Weight: 67 kg

DRUGS (4)
  1. STRATTERA [Suspect]
     Indication: ATTENTION DEFICIT/HYPERACTIVITY DISORDER
     Dosage: 60 MG DAY
  2. ZYPREXA [Suspect]
     Indication: SOMNOLENCE
     Dosage: 10 MG DAY
  3. ADDERALL 10 [Concomitant]
  4. CONCERTA [Concomitant]

REACTIONS (5)
  - CHEST DISCOMFORT [None]
  - HAEMATEMESIS [None]
  - NIPPLE OEDEMA [None]
  - NIPPLE PAIN [None]
  - WEIGHT INCREASED [None]
